FAERS Safety Report 9600360 (Version 2)
Quarter: 2013Q4

REPORT INFORMATION
  Report Type: Spontaneous
  Country: US (occurrence: US)
  Receive Date: 20131004
  Receipt Date: 20131004
  Transmission Date: 20140711
  Serious: Yes (Other)
  Sender: FDA-Public Use
  Company Number: US-AMGEN-USASP2013025845

PATIENT
  Age: 59 Year
  Sex: Female
  Weight: 68.03 kg

DRUGS (12)
  1. ENBREL [Suspect]
     Indication: PRODUCT USED FOR UNKNOWN INDICATION
     Dosage: 50 MG, QWK
     Route: 058
  2. ADVAIR UNSPEC [Concomitant]
     Dosage: 100/50
  3. XOPENEX [Concomitant]
     Dosage: CONC NEB 1.25/0.5
  4. FLONASE [Concomitant]
     Dosage: 0.05 %,SPR
  5. SOMA [Concomitant]
     Dosage: 250 MG, UNK
  6. XANAX [Concomitant]
     Dosage: 0.25 MG, UNK
  7. ZOLPIDEM [Concomitant]
     Dosage: 5 MG, UNK
  8. PREMARIN [Concomitant]
     Dosage: 25 MG, UNK
  9. HYDROCHLOROT [Concomitant]
     Dosage: 12.5 MG, UNK
  10. LEVOTHYROXIN [Concomitant]
     Dosage: 50 MUG, UNK
  11. PANTOPRAZOLE [Concomitant]
     Dosage: 20 MG, UNK
  12. HYDROMORPHONE [Concomitant]
     Dosage: 2 MG, UNK

REACTIONS (13)
  - Lower respiratory tract infection [Unknown]
  - Bronchitis [Unknown]
  - Malaise [Unknown]
  - Carpal tunnel syndrome [Unknown]
  - Scar [Unknown]
  - Polyp [Unknown]
  - Fibromyalgia [Unknown]
  - Hypersensitivity [Unknown]
  - Thyroid disorder [Unknown]
  - Anxiety [Unknown]
  - Abdominal pain upper [Unknown]
  - Fatigue [Unknown]
  - Back pain [Unknown]
